FAERS Safety Report 8954050 (Version 1)
Quarter: 2012Q4

REPORT INFORMATION
  Report Type: 
  Country: US (occurrence: US)
  Receive Date: 20121207
  Receipt Date: 20121207
  Transmission Date: 20130627
  Serious: No
  Sender: FDA-Public Use
  Company Number: US-BAYER-2012-128658

PATIENT
  Sex: Female
  Weight: 70 kg

DRUGS (3)
  1. ALEVE CAPLET/TABLET,MIDOL EXTENDED RELIEF CAPLET [Suspect]
     Indication: MENSTRUAL CRAMP
     Dosage: 1 TAB, UNK
     Dates: start: 20121203
  2. ALEVE CAPLET/TABLET,MIDOL EXTENDED RELIEF CAPLET [Suspect]
     Indication: MENSTRUAL CRAMP
     Dosage: 2 DF, UNK
     Dates: start: 20121202
  3. ALBUTEROL [Concomitant]

REACTIONS (1)
  - Drug ineffective [None]
